FAERS Safety Report 4518741-4 (Version None)
Quarter: 2004Q4

REPORT INFORMATION
  Report Type: 
  Country: None (occurrence: None)
  Receive Date: 20041201
  Receipt Date: 20041117
  Transmission Date: 20050328
  Serious: Yes (Life-Threatening, Hospitalization)
  Sender: FDA-Public Use
  Company Number: DSA_81138_2004

PATIENT
  Age: 42 Year
  Sex: Male

DRUGS (5)
  1. XYREM [Suspect]
     Indication: CATAPLEXY
     Dosage: 4.5 G NIGHTLY PO
     Route: 048
     Dates: start: 20040101, end: 20041101
  2. XYREM [Suspect]
     Indication: NARCOLEPSY
     Dosage: 4.5 G NIGHTLY PO
     Route: 048
     Dates: start: 20040101, end: 20041101
  3. PROVIGIL [Concomitant]
  4. DEXEDRINE LA [Concomitant]
  5. PRILOSEC [Concomitant]

REACTIONS (3)
  - DEEP VEIN THROMBOSIS [None]
  - LIMB DISCOMFORT [None]
  - OEDEMA PERIPHERAL [None]
